FAERS Safety Report 22302719 (Version 1)
Quarter: 2023Q2

REPORT INFORMATION
  Report Type: Spontaneous
  Country: None (occurrence: US)
  Receive Date: 20230510
  Receipt Date: 20230510
  Transmission Date: 20230722
  Serious: No
  Sender: FDA-Public Use
  Company Number: US-P+L Developments of Newyork Corporation-2141321

PATIENT
  Age: 74 Year
  Sex: Female

DRUGS (1)
  1. LORATADINE [Suspect]
     Active Substance: LORATADINE
     Indication: Hypersensitivity
     Route: 048

REACTIONS (3)
  - Swelling of eyelid [Recovering/Resolving]
  - Eyelid pain [Recovering/Resolving]
  - Skin exfoliation [Recovering/Resolving]
